FAERS Safety Report 22300302 (Version 2)
Quarter: 2023Q2

REPORT INFORMATION
  Report Type: Spontaneous
  Country: US (occurrence: None)
  Receive Date: 20230509
  Receipt Date: 20230614
  Transmission Date: 20230722
  Serious: Yes (Hospitalization, Other)
  Sender: FDA-Public Use
  Company Number: US-Unichem Pharmaceuticals (USA) Inc-UCM202304-000532

PATIENT
  Age: 28 Year
  Sex: Male

DRUGS (15)
  1. ARIPIPRAZOLE [Suspect]
     Active Substance: ARIPIPRAZOLE
     Indication: Bipolar disorder
  2. ARIPIPRAZOLE [Suspect]
     Active Substance: ARIPIPRAZOLE
  3. ARIPIPRAZOLE [Suspect]
     Active Substance: ARIPIPRAZOLE
  4. ARIPIPRAZOLE [Suspect]
     Active Substance: ARIPIPRAZOLE
  5. QUETIAPINE [Suspect]
     Active Substance: QUETIAPINE
     Indication: Bipolar disorder
  6. SERTRALINE [Concomitant]
     Active Substance: SERTRALINE HYDROCHLORIDE
     Indication: Major depression
  7. PENICILLIN [Concomitant]
     Active Substance: PENICILLIN
     Indication: Pharyngitis
  8. LITHIUM [Concomitant]
     Active Substance: LITHIUM
     Indication: Bipolar disorder
  9. LITHIUM [Concomitant]
     Active Substance: LITHIUM
     Dosage: IN THE MORNING
  10. LITHIUM [Concomitant]
     Active Substance: LITHIUM
     Dosage: EVERY NIGHT AT BEDTIME
  11. BENZTROPINE [Concomitant]
     Active Substance: BENZTROPINE
     Indication: Product used for unknown indication
  12. METFORMIN [Concomitant]
     Active Substance: METFORMIN HYDROCHLORIDE
     Indication: Product used for unknown indication
  13. LEVOTHYROXINE [Concomitant]
     Active Substance: LEVOTHYROXINE
     Indication: Product used for unknown indication
     Dosage: IN THE MORNING
  14. LURASIDONE [Concomitant]
     Active Substance: LURASIDONE
     Indication: Bipolar disorder
     Dosage: IN THE EVENING
  15. LAMOTRIGINE [Concomitant]
     Active Substance: LAMOTRIGINE
     Indication: Bipolar disorder
     Dosage: IN THE EVENING

REACTIONS (2)
  - Pericarditis [Recovered/Resolved]
  - Drug ineffective [Unknown]
